FAERS Safety Report 6720289-3 (Version None)
Quarter: 2010Q2

REPORT INFORMATION
  Report Type: 
  Country: None (occurrence: None)
  Receive Date: 20100511
  Receipt Date: 20100426
  Transmission Date: 20101027
  Serious: Yes (Other)
  Sender: FDA-Public Use
  Company Number: US-TEVA-230608USA

PATIENT
  Sex: Female
  Weight: 77.18 kg

DRUGS (1)
  1. PLAN B ONE-STEP [Suspect]
     Indication: POST COITAL CONTRACEPTION
     Route: 048
     Dates: start: 20100401, end: 20100401

REACTIONS (10)
  - ABDOMINAL PAIN [None]
  - BACK PAIN [None]
  - DRY THROAT [None]
  - HAEMOPTYSIS [None]
  - HAEMORRHAGE [None]
  - HYPERTENSION [None]
  - MENSTRUATION DELAYED [None]
  - OROPHARYNGEAL PAIN [None]
  - PLATELET COUNT INCREASED [None]
  - RED BLOOD CELL COUNT INCREASED [None]
